FAERS Safety Report 6331707-7 (Version None)
Quarter: 2009Q3

REPORT INFORMATION
  Report Type: 
  Country: None (occurrence: None)
  Receive Date: 20090827
  Receipt Date: 20090819
  Transmission Date: 20100115
  Serious: Yes (Hospitalization)
  Sender: FDA-Public Use
  Company Number: JP-ABBOTT-09P-087-0592499-00

PATIENT
  Sex: Female
  Weight: 48 kg

DRUGS (15)
  1. HUMIRA [Suspect]
     Indication: RHEUMATOID ARTHRITIS
     Route: 058
     Dates: start: 20090225, end: 20090506
  2. HUMIRA [Suspect]
     Route: 058
     Dates: start: 20090603
  3. METHOTREXATE SODIUM [Concomitant]
     Indication: RHEUMATOID ARTHRITIS
  4. PREDNISOLONE [Concomitant]
     Indication: RHEUMATOID ARTHRITIS
     Route: 048
     Dates: start: 20090306, end: 20090714
  5. PREDNISOLONE [Concomitant]
     Route: 048
     Dates: start: 20090715, end: 20090811
  6. PREDNISOLONE [Concomitant]
     Route: 048
     Dates: start: 20090812
  7. PREDNISOLONE [Concomitant]
     Route: 048
  8. RISEDRONATE SODIUM [Concomitant]
     Indication: RHEUMATOID ARTHRITIS
  9. MENATETRENONE [Concomitant]
     Indication: OSTEOPOROSIS
  10. ALFACALCIDOL [Concomitant]
     Indication: OSTEOPOROSIS
  11. FOLIC ACID [Concomitant]
     Indication: DRUG USE FOR UNKNOWN INDICATION
  12. MECOBALAMIN [Concomitant]
     Indication: DRUG USE FOR UNKNOWN INDICATION
  13. LORNOXICAM [Concomitant]
     Indication: DRUG USE FOR UNKNOWN INDICATION
  14. CEFCAPENE PIVOXIL HYDROCHLORIDE [Concomitant]
     Indication: DRUG USE FOR UNKNOWN INDICATION
     Dates: start: 20090529, end: 20090605
  15. FERROUS CITRATE [Concomitant]
     Indication: DRUG USE FOR UNKNOWN INDICATION

REACTIONS (2)
  - SPINAL COMPRESSION FRACTURE [None]
  - URINARY TRACT INFECTION [None]
